FAERS Safety Report 4514458-0 (Version None)
Quarter: 2004Q4

REPORT INFORMATION
  Report Type: 
  Country: None (occurrence: None)
  Receive Date: 20040928
  Receipt Date: 20040715
  Transmission Date: 20050328
  Serious: No
  Sender: FDA-Public Use
  Company Number: 04P-163-0267367-00

PATIENT
  Age: 60 Year
  Sex: Female
  Weight: 66.6788 kg

DRUGS (4)
  1. HUMIRA [Suspect]
     Indication: RHEUMATOID ARTHRITIS
     Dosage: SEE IMAGE
     Route: 058
     Dates: start: 20030801, end: 20031201
  2. HUMIRA [Suspect]
     Indication: RHEUMATOID ARTHRITIS
     Dosage: SEE IMAGE
     Route: 058
     Dates: start: 20040101
  3. NABUMETONE [Concomitant]
  4. PARACETAMOL [Concomitant]

REACTIONS (3)
  - DIFFICULTY IN WALKING [None]
  - JOINT SWELLING [None]
  - WEIGHT INCREASED [None]
